FAERS Safety Report 21809400 (Version 2)
Quarter: 2023Q2

REPORT INFORMATION
  Report Type: Report from Study
  Country: US (occurrence: US)
  Receive Date: 20230103
  Receipt Date: 20230515
  Transmission Date: 20230722
  Serious: No
  Sender: FDA-Public Use
  Company Number: US-ABBVIE-4212647

PATIENT
  Age: 74 Year
  Sex: Female
  Weight: 95.707 kg

DRUGS (2)
  1. RINVOQ [Suspect]
     Active Substance: UPADACITINIB
     Indication: Product used for unknown indication
     Dosage: FORM STRENGTH: 15 MILLIGRAM
     Route: 048
     Dates: start: 201912
  2. DENOSUMAB [Concomitant]
     Active Substance: DENOSUMAB
     Indication: Product used for unknown indication

REACTIONS (2)
  - Oral candidiasis [Unknown]
  - Candida infection [Unknown]

NARRATIVE: CASE EVENT DATE: 20220401
